FAERS Safety Report 6643350-0 (Version None)
Quarter: 2010Q1

REPORT INFORMATION
  Report Type: 
  Country: None (occurrence: None)
  Receive Date: 20100319
  Receipt Date: 20100311
  Transmission Date: 20100710
  Serious: Yes (Hospitalization, Other)
  Sender: FDA-Public Use
  Company Number: BR-ABBOTT-09P-020-0603142-00

PATIENT
  Sex: Female
  Weight: 59 kg

DRUGS (19)
  1. HUMIRA [Suspect]
     Indication: RHEUMATOID ARTHRITIS
     Route: 058
     Dates: end: 20090725
  2. HUMIRA [Suspect]
  3. HUMIRA [Suspect]
  4. MAREVAN [Concomitant]
     Indication: ANTICOAGULANT THERAPY
     Dosage: 3/4 DAILY
     Route: 048
  5. CLOPIDOGREL [Concomitant]
     Indication: ANTICOAGULANT THERAPY
     Route: 048
  6. SIMVASTATIN [Concomitant]
     Indication: BLOOD CHOLESTEROL
     Route: 048
     Dates: start: 20090701
  7. SELO-ZOK [Concomitant]
     Indication: HYPERTENSION
     Route: 048
     Dates: start: 20090701
  8. SELO-ZOK [Concomitant]
     Route: 048
     Dates: start: 20090701
  9. LOSARTAN POTASSIUM [Concomitant]
     Indication: BLOOD PRESSURE
     Route: 048
  10. LOSARTAN POTASSIUM [Concomitant]
     Indication: HYPERTENSION
     Route: 048
     Dates: start: 20090701
  11. AAS [Concomitant]
     Indication: ANTICOAGULANT THERAPY
     Route: 048
  12. PRELONE [Concomitant]
     Indication: RHEUMATOID ARTHRITIS
     Dosage: 1/2 TABLET PER DAY
     Route: 048
  13. METHOTREXATE [Concomitant]
     Indication: RHEUMATOID ARTHRITIS
     Route: 058
  14. FOLIC ACID [Concomitant]
     Indication: ANAEMIA
     Route: 048
  15. FOLIC ACID [Concomitant]
     Indication: LIVER DISORDER
  16. CALCIUM CARBONATE, VITAMIN D (NUTRICAL D) [Concomitant]
     Indication: MINERAL SUPPLEMENTATION
     Route: 048
  17. PANTOPRAZOLE [Concomitant]
     Indication: GASTRIC DISORDER
     Route: 048
  18. PREDNISONE [Concomitant]
     Indication: MUSCULOSKELETAL PAIN
     Route: 048
  19. OMEPRAZOLE [Concomitant]
     Indication: GASTRIC DISORDER
     Route: 048

REACTIONS (9)
  - INCISION SITE COMPLICATION [None]
  - INCISION SITE PAIN [None]
  - INJECTION SITE ERYTHEMA [None]
  - INJECTION SITE OEDEMA [None]
  - INJECTION SITE PRURITUS [None]
  - MYOCARDIAL INFARCTION [None]
  - TONGUE OEDEMA [None]
  - WEIGHT DECREASED [None]
  - WOUND DRAINAGE [None]
